FAERS Safety Report 16978936 (Version 4)
Quarter: 2023Q2

REPORT INFORMATION
  Report Type: Spontaneous
  Country: US (occurrence: US)
  Receive Date: 20191031
  Receipt Date: 20230608
  Transmission Date: 20230722
  Serious: Yes (Other)
  Sender: FDA-Public Use
  Company Number: US-PFIZER INC-2019456695

PATIENT
  Age: 72 Year
  Sex: Female

DRUGS (1)
  1. XELJANZ XR [Suspect]
     Active Substance: TOFACITINIB CITRATE
     Indication: Rheumatoid arthritis
     Dosage: 11 MG, UNK

REACTIONS (6)
  - Meniscus injury [Unknown]
  - Pain [Unknown]
  - Neuralgia [Unknown]
  - Back pain [Unknown]
  - Radiculopathy [Recovering/Resolving]
  - Illness [Unknown]
